FAERS Safety Report 15640271 (Version 1)
Quarter: 2018Q4

REPORT INFORMATION
  Report Type: Report from Study
  Country: None (occurrence: RO)
  Receive Date: 20181120
  Receipt Date: 20181120
  Transmission Date: 20190205
  Serious: Yes (Other)
  Sender: FDA-Public Use
  Company Number: RO-ABBVIE-18S-135-2557612-00

PATIENT
  Age: 77 Year
  Sex: Female

DRUGS (1)
  1. DUODOPA [Suspect]
     Active Substance: CARBIDOPA\LEVODOPA
     Indication: PARKINSON^S DISEASE
     Dosage: DM=7.00?DC=5.50?ED=2.50?NRED=0;?DMN=0.00?DCN=4.00?EDN=4.00?NREDN=0
     Route: 050
     Dates: start: 20150522

REACTIONS (2)
  - Hallucination [Recovering/Resolving]
  - Dementia [Recovering/Resolving]

NARRATIVE: CASE EVENT DATE: 2016
